FAERS Safety Report 4295227-6 (Version None)
Quarter: 2004Q1

REPORT INFORMATION
  Report Type: 
  Country: None (occurrence: None)
  Receive Date: 20040212
  Receipt Date: 20040204
  Transmission Date: 20041129
  Serious: Yes (Other)
  Sender: FDA-Public Use
  Company Number: 200410410BCC

PATIENT
  Age: 75 Year
  Sex: Female
  Weight: 77.1115 kg

DRUGS (4)
  1. MILK OF MAGNESIA TAB [Suspect]
     Indication: CONSTIPATION
     Dosage: PRN, ORAL
     Route: 048
  2. COUMADIN [Concomitant]
  3. KLONOPIN [Concomitant]
  4. ;IPITOR [Concomitant]

REACTIONS (2)
  - HEAD INJURY [None]
  - SYNCOPE [None]
